FAERS Safety Report 18691217 (Version 8)
Quarter: 2022Q4

REPORT INFORMATION
  Report Type: Report from Study
  Country: DE (occurrence: DE)
  Receive Date: 20210101
  Receipt Date: 20221029
  Transmission Date: 20230112
  Serious: Yes (Life-Threatening, Other)
  Sender: FDA-Public Use
  Company Number: NVSC2020DE342764

PATIENT
  Sex: Female
  Weight: 103 kg

DRUGS (3)
  1. KISQALI [Suspect]
     Active Substance: RIBOCICLIB
     Indication: Breast cancer metastatic
     Dosage: 600 MG, QD (DAILY DOSE) (REGIMEN 21 DAYS INTAKE, 7 DAYS PAUSE)
     Route: 048
     Dates: start: 20201207, end: 20210103
  2. KISQALI [Suspect]
     Active Substance: RIBOCICLIB
     Dosage: 400 MG, QD (DAILY DOSE) (REGIMEN 21 DAYS INTAKE, 7 DAYS PAUSE)
     Route: 048
     Dates: start: 20210111
  3. LETROZOLE [Suspect]
     Active Substance: LETROZOLE
     Indication: Breast cancer metastatic
     Dosage: 2.5 MG, QD (DAILY DOSE)
     Route: 048
     Dates: start: 20201207

REACTIONS (4)
  - Neutropenia [Recovering/Resolving]
  - Thrombocytopenia [Recovering/Resolving]
  - Leukopenia [Recovering/Resolving]
  - Urinary tract infection [Recovered/Resolved]

NARRATIVE: CASE EVENT DATE: 20201221
